FAERS Safety Report 6793745-X (Version None)
Quarter: 2010Q2

REPORT INFORMATION
  Report Type: 
  Country: None (occurrence: None)
  Receive Date: 20100624
  Receipt Date: 20090117
  Transmission Date: 20101027
  Serious: No
  Sender: FDA-Public Use
  Company Number: US-PFIZER INC-2009158128

PATIENT
  Sex: Female
  Weight: 77.1 kg

DRUGS (2)
  1. RELPAX [Suspect]
     Indication: MIGRAINE
     Dosage: 40 MG, AS NEEDED
     Dates: start: 20080101
  2. WELLBUTRIN [Concomitant]
     Dosage: UNK

REACTIONS (1)
  - SINUSITIS [None]
